FAERS Safety Report 8669603 (Version 5)
Quarter: 2013Q4

REPORT INFORMATION
  Report Type: Spontaneous
  Country: FR (occurrence: FR)
  Receive Date: 20120718
  Receipt Date: 20131129
  Transmission Date: 20140711
  Serious: Yes (Hospitalization)
  Sender: FDA-Public Use
  Company Number: FR-009507513-1207FRA001557

PATIENT
  Age: 73 Year
  Sex: Male

DRUGS (11)
  1. SINGULAIR [Suspect]
     Indication: ASTHMA
     Dosage: 10 MG, QD
     Route: 048
     Dates: start: 20110415, end: 20120525
  2. INIPOMP [Suspect]
     Indication: OESOPHAGITIS
     Dosage: 40 MG, QD
     Route: 048
     Dates: start: 20110415, end: 20120525
  3. MIFLONIL [Suspect]
     Indication: ASTHMA
     Dosage: 400 MICROGRAM, BID
     Route: 048
     Dates: start: 20111125, end: 20120525
  4. FORADIL [Suspect]
     Indication: ASTHMA
     Dosage: 12 MICROGRAM, BID
     Route: 055
     Dates: start: 20111125
  5. FUROSEMIDE [Suspect]
     Dosage: 20 MG
     Route: 048
  6. FLECAINE [Concomitant]
  7. KETODERM [Concomitant]
     Route: 061
  8. TARDYFERON [Concomitant]
  9. TAREG [Concomitant]
  10. TRIDESONIT [Concomitant]
  11. VENTOLINE (ALBUTEROL SULFATE) [Concomitant]

REACTIONS (14)
  - Rash generalised [Recovered/Resolved]
  - Rash erythematous [Recovered/Resolved]
  - Rash papular [Recovered/Resolved]
  - Dermatitis bullous [Recovered/Resolved]
  - Biopsy skin abnormal [Unknown]
  - Blood immunoglobulin G decreased [Unknown]
  - Blood immunoglobulin M decreased [Unknown]
  - Eosinophil count increased [Unknown]
  - Nausea [Unknown]
  - Pemphigoid [Unknown]
  - Prurigo [Unknown]
  - Rash maculo-papular [Unknown]
  - Urticaria [Unknown]
  - Vomiting [Unknown]
